FAERS Safety Report 6710396-3 (Version None)
Quarter: 2010Q2

REPORT INFORMATION
  Report Type: 
  Country: None (occurrence: None)
  Receive Date: 20100504
  Receipt Date: 20100421
  Transmission Date: 20101027
  Serious: Yes (Other)
  Sender: FDA-Public Use
  Company Number: VE-ELI_LILLY_AND_COMPANY-VE201004006127

PATIENT
  Age: 59 Year
  Sex: Male

DRUGS (3)
  1. ALIMTA [Suspect]
     Indication: NON-SMALL CELL LUNG CANCER METASTATIC
  2. CISPLATIN [Concomitant]
     Indication: NON-SMALL CELL LUNG CANCER METASTATIC
  3. ANTIEMETICS AND ANTINAUSEANTS [Concomitant]

REACTIONS (1)
  - HEPATITIS TOXIC [None]
